FAERS Safety Report 8798772 (Version 8)
Quarter: 2013Q3

REPORT INFORMATION
  Report Type: Spontaneous
  Country: IE (occurrence: IE)
  Receive Date: 20120920
  Receipt Date: 20130927
  Transmission Date: 20140515
  Serious: Yes (Life-Threatening, Hospitalization, Disabling, Other)
  Sender: FDA-Public Use
  Company Number: PHFR2012IE005008

PATIENT
  Age: 54 Year
  Sex: Male

DRUGS (13)
  1. CLOZARIL [Suspect]
     Indication: SCHIZOPHRENIA, PARANOID TYPE
     Dosage: 450 MG,
     Route: 048
     Dates: start: 20030326, end: 20120917
  2. FLUOXETINE [Concomitant]
     Indication: DEPRESSION
     Dosage: 20 MG, DAILY
     Route: 048
  3. EPILIM CHRONO [Concomitant]
     Indication: MOOD SWINGS
     Dosage: 1200 MG,DAILY
     Route: 048
     Dates: start: 20130513
  4. ARIPIPRAZOLE [Concomitant]
     Indication: SCHIZOPHRENIA
     Dosage: 30 MG,DAILY
     Route: 048
     Dates: start: 20130513
  5. METFORMIN [Concomitant]
     Indication: DIABETES MELLITUS
     Dosage: 1000 MG, DAILY
     Route: 048
     Dates: start: 20130513
  6. TAMSULOSIN [Concomitant]
     Indication: URINARY INCONTINENCE
     Dosage: 400 UG, DAILY
     Route: 048
     Dates: start: 20130513
  7. FRUSEMIDE [Concomitant]
     Indication: HYPERTENSION
     Dosage: 20 MG, DAILY
     Route: 048
     Dates: start: 20130513
  8. OMEPRAZOLE [Concomitant]
     Indication: GASTROOESOPHAGEAL REFLUX DISEASE
     Dosage: 20 MG, DAILY
     Route: 048
     Dates: start: 20120901
  9. LANSOPRAZOLE [Concomitant]
     Dosage: UNK
  10. RAMIPRIL [Concomitant]
     Indication: HYPERTENSION
     Dosage: 5 MG, DAILY
     Route: 048
     Dates: start: 20130513
  11. TIOTROPIUM [Concomitant]
     Indication: CHRONIC OBSTRUCTIVE PULMONARY DISEASE
     Dosage: 18 MG, UNK
  12. SERETIDE [Concomitant]
     Indication: CHRONIC OBSTRUCTIVE PULMONARY DISEASE
     Dosage: 500 MG, BID
     Dates: start: 20130513
  13. SPIRIVA [Concomitant]
     Indication: CHRONIC OBSTRUCTIVE PULMONARY DISEASE
     Dosage: 10 UG,
     Dates: start: 20130513

REACTIONS (12)
  - Volvulus [Recovered/Resolved with Sequelae]
  - Abdominal distension [Unknown]
  - Gastrointestinal necrosis [Recovered/Resolved]
  - Post procedural complication [Recovering/Resolving]
  - Megacolon [Unknown]
  - Sepsis [Unknown]
  - Renal failure [Recovering/Resolving]
  - Anuria [Unknown]
  - Diverticulum [Unknown]
  - Constipation [Recovered/Resolved]
  - White blood cell count increased [Recovering/Resolving]
  - Neutrophil count increased [Recovering/Resolving]
